FAERS Safety Report 17454856 (Version 1)
Quarter: 2020Q1

REPORT INFORMATION
  Report Type: Spontaneous
  Country: CN (occurrence: CN)
  Receive Date: 20200225
  Receipt Date: 20200225
  Transmission Date: 20200409
  Serious: Yes (Other)
  Sender: FDA-Public Use
  Company Number: CN-BAXTER-2020BAX003796

PATIENT
  Age: 50 Year
  Sex: Female
  Weight: 64 kg

DRUGS (12)
  1. ENDOXAN [Suspect]
     Active Substance: CYCLOPHOSPHAMIDE
     Dosage: ENDOXAN + 50 ML NS, FOURTH CHEMOTHERAPY
     Route: 042
     Dates: start: 20191211, end: 20191211
  2. 0.9% SODIUM CHLORIDE INJECTION [Suspect]
     Active Substance: SODIUM CHLORIDE
     Dosage: ENDOXAN + NS (DOSE RE-INTRODUCED)
     Route: 042
  3. AI SU [Suspect]
     Active Substance: DOCETAXEL
     Indication: BREAST CANCER FEMALE
     Dosage: AI SU + NS , FIRST TO THIRD CHEMOTHERAPY
     Route: 041
  4. AI SU [Suspect]
     Active Substance: DOCETAXEL
     Dosage: AI SU + 250 ML NS, FOURTH CHEMOTHERAPY.
     Route: 041
     Dates: start: 20191211, end: 20191211
  5. 0.9% SODIUM CHLORIDE INJECTION [Suspect]
     Active Substance: SODIUM CHLORIDE
     Dosage: ENDOXAN + 50 ML NS, FOURTH CHEMOTHERAPY.
     Route: 042
     Dates: start: 20191211, end: 20191211
  6. 0.9% SODIUM CHLORIDE INJECTION [Suspect]
     Active Substance: SODIUM CHLORIDE
     Dosage: AISU + 250ML NS, FOURTH CHEMOTHERAPY
     Route: 041
     Dates: start: 20191211, end: 20191211
  7. 0.9% SODIUM CHLORIDE INJECTION [Suspect]
     Active Substance: SODIUM CHLORIDE
     Indication: MEDICATION DILUTION
     Dosage: ENDOXAN + NS, FIRST TO THIRD CHEMOTHERAPY.
     Route: 042
  8. AI SU [Suspect]
     Active Substance: DOCETAXEL
     Dosage: AI SU + NS, (DOSE RE-INTRODUCED)
     Route: 041
  9. 0.9% SODIUM CHLORIDE INJECTION [Suspect]
     Active Substance: SODIUM CHLORIDE
     Dosage: AI SU + NS, FIRST TOT THIRD CHEMOTHERAPY.
     Route: 041
  10. ENDOXAN [Suspect]
     Active Substance: CYCLOPHOSPHAMIDE
     Dosage: ENDOXAN + NS (DOSE RE-INTRODUCED)
     Route: 042
  11. 0.9% SODIUM CHLORIDE INJECTION [Suspect]
     Active Substance: SODIUM CHLORIDE
     Dosage: AI SU + NS  (DOSE RE-INTRODUCED)
     Route: 041
  12. ENDOXAN [Suspect]
     Active Substance: CYCLOPHOSPHAMIDE
     Indication: BREAST CANCER FEMALE
     Dosage: ENDOXAN + NS, FIRST TO THIRD CHEMOTHERAPY
     Route: 042

REACTIONS (1)
  - Agranulocytosis [Recovered/Resolved]

NARRATIVE: CASE EVENT DATE: 20191219
